FAERS Safety Report 20105113 (Version 1)
Quarter: 2021Q4

REPORT INFORMATION
  Report Type: Other
  Country: US (occurrence: None)
  Receive Date: 20211124
  Receipt Date: 20211124
  Transmission Date: 20220303
  Serious: Yes (Hospitalization)
  Sender: FDA-Public Use
  Company Number: US-ROCHE-2962741

PATIENT
  Sex: Male

DRUGS (13)
  1. ALECENSA [Suspect]
     Active Substance: ALECTINIB HYDROCHLORIDE
     Indication: Metastases to bone
     Dosage: TAKE 4 CAPSULE BY MOUTH TWICE A DAY
     Route: 048
  2. DOXAZOSIN [Concomitant]
     Active Substance: DOXAZOSIN MESYLATE
  3. LOSARTAN [Concomitant]
     Active Substance: LOSARTAN
  4. AMLODIPINE [Concomitant]
     Active Substance: AMLODIPINE BESYLATE
  5. LORAZEPAM [Concomitant]
     Active Substance: LORAZEPAM
  6. MAGNESIUM OXIDE [Concomitant]
     Active Substance: MAGNESIUM OXIDE
  7. PREDNISONE [Concomitant]
     Active Substance: PREDNISONE
  8. ALECTINIB [Concomitant]
     Active Substance: ALECTINIB
  9. CALCIUM\VITAMIN D [Concomitant]
     Active Substance: CALCIUM\VITAMIN D
  10. ASCORBIC ACID [Concomitant]
     Active Substance: ASCORBIC ACID
  11. FOLIC ACID [Concomitant]
     Active Substance: FOLIC ACID
  12. ACYCLOVIR [Concomitant]
     Active Substance: ACYCLOVIR
  13. LEVOFLOXACIN [Concomitant]
     Active Substance: LEVOFLOXACIN

REACTIONS (1)
  - Acute myeloid leukaemia [Unknown]
